FAERS Safety Report 6189376-5 (Version None)
Quarter: 2009Q2

REPORT INFORMATION
  Report Type: 
  Country: None (occurrence: None)
  Receive Date: 20090512
  Receipt Date: 20090430
  Transmission Date: 20091009
  Serious: Yes (Hospitalization, Other)
  Sender: FDA-Public Use
  Company Number: 09-000529

PATIENT
  Sex: Female

DRUGS (3)
  1. DORYX [Suspect]
     Indication: CAT SCRATCH DISEASE
     Dosage: 150MG, 2 TABLETS, QN, ORAL
     Route: 048
     Dates: start: 20090312, end: 20090301
  2. DORYX [Suspect]
     Indication: LYME DISEASE
     Dosage: 150MG, 2 TABLETS, QN, ORAL
     Route: 048
     Dates: start: 20090312, end: 20090301
  3. RIFAMPICIN [Concomitant]

REACTIONS (13)
  - ANOREXIA [None]
  - BEDRIDDEN [None]
  - BENIGN INTRACRANIAL HYPERTENSION [None]
  - DEHYDRATION [None]
  - DELUSION [None]
  - DRUG HYPERSENSITIVITY [None]
  - FEELING ABNORMAL [None]
  - HALLUCINATION, AUDITORY [None]
  - MYOCARDIAL INFARCTION [None]
  - PARAESTHESIA ORAL [None]
  - PARANOIA [None]
  - PSYCHOTIC DISORDER [None]
  - THROAT TIGHTNESS [None]
